FAERS Safety Report 5986978-3 (Version None)
Quarter: 2008Q4

REPORT INFORMATION
  Report Type: 
  Country: None (occurrence: None)
  Receive Date: 20081209
  Receipt Date: 20081202
  Transmission Date: 20090506
  Serious: Yes (Congenital Anomaly)
  Sender: FDA-Public Use
  Company Number: A0687227A

PATIENT
  Sex: Male

DRUGS (3)
  1. PAXIL [Suspect]
     Dosage: 20MG PER DAY
     Dates: start: 19990101, end: 20031223
  2. VITAMIN TAB [Concomitant]
     Indication: PREGNANCY
     Dates: start: 20031023, end: 20040716
  3. TYLENOL (CAPLET) [Concomitant]

REACTIONS (5)
  - APPENDIX DISORDER [None]
  - CONVULSION [None]
  - DRUG EXPOSURE DURING PREGNANCY [None]
  - MULTIPLE CONGENITAL ABNORMALITIES [None]
  - VITELLO-INTESTINAL DUCT REMNANT [None]
